FAERS Safety Report 7816435-0 (Version None)
Quarter: 2011Q4

REPORT INFORMATION
  Report Type: 
  Country: None (occurrence: None)
  Receive Date: 20111017
  Receipt Date: 20111003
  Transmission Date: 20120403
  Serious: Yes (Death, Other)
  Sender: FDA-Public Use
  Company Number: JP-JNJFOC-20110907718

PATIENT
  Age: 69 Year
  Sex: Male

DRUGS (5)
  1. RISPERDAL [Suspect]
     Indication: PRODUCT USED FOR UNKNOWN INDICATION
     Route: 048
     Dates: end: 20110919
  2. CLONAZEPAM [Concomitant]
     Indication: PROPHYLAXIS
     Route: 048
  3. TOCOPHEROL ACETATE [Concomitant]
     Indication: PROPHYLAXIS
     Route: 048
  4. LITHIUM CARBONATE [Concomitant]
     Route: 048
  5. CYMBALTA [Concomitant]
     Route: 048

REACTIONS (2)
  - DYSKINESIA [None]
  - DEATH [None]
